FAERS Safety Report 7906544-X (Version None)
Quarter: 2011Q4

REPORT INFORMATION
  Report Type: 
  Country: None (occurrence: None)
  Receive Date: 20111110
  Receipt Date: 20111108
  Transmission Date: 20120403
  Serious: Yes (Other)
  Sender: FDA-Public Use
  Company Number: JP-PFIZER INC-2011265080

PATIENT
  Age: 68 Year
  Sex: Male

DRUGS (7)
  1. LYRICA [Suspect]
     Dosage: 75 MG DAILY
     Route: 048
     Dates: start: 20111027, end: 20111001
  2. TOWARAT CR [Concomitant]
     Dosage: 40 MG DAILY
     Route: 048
  3. COUGHNOL [Concomitant]
     Dosage: 45 MG DAILY
     Route: 048
  4. METHISTA [Concomitant]
     Dosage: 1500 MG DAILY
     Route: 048
  5. LANSOPRAZOLE [Concomitant]
     Dosage: 15 MG DAILY
     Route: 048
  6. RIZE [Concomitant]
     Dosage: 15 MG DAILY
     Route: 048
  7. LYRICA [Suspect]
     Dosage: UNK
     Route: 048
     Dates: start: 20110501, end: 20111026

REACTIONS (3)
  - HAEMATOCHEZIA [None]
  - HAEMATEMESIS [None]
  - DIARRHOEA [None]
